FAERS Safety Report 19287149 (Version 1)
Quarter: 2021Q2

REPORT INFORMATION
  Report Type: Spontaneous
  Country: JP (occurrence: JP)
  Receive Date: 20210521
  Receipt Date: 20210521
  Transmission Date: 20210717
  Serious: Yes (Hospitalization)
  Sender: FDA-Public Use
  Company Number: JP-GILEAD-2021-0530898

PATIENT
  Age: 68 Year
  Sex: Female

DRUGS (1)
  1. VEMLIDY [Suspect]
     Active Substance: TENOFOVIR ALAFENAMIDE FUMARATE
     Indication: HEPATITIS B
     Dosage: 25 MG
     Route: 048

REACTIONS (2)
  - Poriomania [Recovered/Resolved]
  - Poriomania [Recovered/Resolved]

NARRATIVE: CASE EVENT DATE: 202001
